FAERS Safety Report 6034879-7 (Version None)
Quarter: 2009Q1

REPORT INFORMATION
  Report Type: 
  Country: None (occurrence: None)
  Receive Date: 20090108
  Receipt Date: 20090108
  Transmission Date: 20090719
  Serious: Yes (Other)
  Sender: FDA-Public Use
  Company Number: None

PATIENT
  Age: 48 Year
  Sex: Male
  Weight: 63.5036 kg

DRUGS (1)
  1. CLOSEUP ANTICAVITY TOOTHPASTE SODIUM FLUORIDE 0.24% CHURCH + DWIGHT CO [Suspect]
     Indication: DENTAL DISORDER PROPHYLAXIS
     Dosage: PEA SIZE TWICE DAILY DENTAL
     Route: 004
     Dates: start: 20081215, end: 20081224

REACTIONS (2)
  - APHTHOUS STOMATITIS [None]
  - ORAL DISCOMFORT [None]
